FAERS Safety Report 7315519-3 (Version None)
Quarter: 2011Q1

REPORT INFORMATION
  Report Type: 
  Country: None (occurrence: None)
  Receive Date: 20110218
  Receipt Date: 20110218
  Transmission Date: 20110831
  Serious: Yes (Hospitalization)
  Sender: FDA-Public Use
  Company Number: None

PATIENT
  Age: 66 Year
  Sex: Female
  Weight: 99.9 kg

DRUGS (8)
  1. ALEVE [Suspect]
     Indication: BURSITIS
     Dosage: DAILY PO
     Route: 048
  2. M.V.I. [Concomitant]
  3. METFORMIN [Concomitant]
  4. BC POWDER [Suspect]
     Indication: BURSITIS
     Dosage: PO
     Route: 048
  5. FISH OIL [Concomitant]
  6. PSEUDOEPHEDRINE HCL [Concomitant]
  7. TOPROL-XL [Concomitant]
  8. FLUOXETINE [Concomitant]

REACTIONS (2)
  - HAEMATOCHEZIA [None]
  - DIVERTICULUM [None]
